FAERS Safety Report 6293056-5 (Version None)
Quarter: 2009Q3

REPORT INFORMATION
  Report Type: 
  Country: None (occurrence: None)
  Receive Date: 20090729
  Receipt Date: 20090720
  Transmission Date: 20100115
  Serious: Yes (Life-Threatening)
  Sender: FDA-Public Use
  Company Number: ADR9812009

PATIENT
  Age: 55 Year
  Sex: Male

DRUGS (20)
  1. AMLODIPINE [Suspect]
     Indication: HYPERTENSION
  2. BISOPROLOL-5MG [Concomitant]
  3. ESCITALOPRAM-20MG [Concomitant]
  4. FRUSEMIDE [Concomitant]
  5. ASPIRIN [Concomitant]
  6. BENDROFLUMETHIAZIDE-2.5MG [Concomitant]
  7. METAHISTINE-24MG [Concomitant]
  8. CLOPIDOGREL [Concomitant]
  9. DIPYRIDAMOLE-40MG [Concomitant]
  10. GABAPENTIN-120MG [Concomitant]
  11. GLYCERYL TRINITRATE- [Concomitant]
  12. HYDRALAZINE-100MG [Concomitant]
  13. IRBESARTAN [Concomitant]
  14. ISOSORBIDE MONONITRATE [Concomitant]
  15. NICORANDIL-60MG [Concomitant]
  16. NOVOMIX [Concomitant]
  17. RANITIDINE-300MG [Concomitant]
  18. ROSUVASTATIN-10MG [Concomitant]
  19. THIAMINE HCL [Concomitant]
  20. ZOPICLONE-3.75MG [Concomitant]

REACTIONS (4)
  - BRADYCARDIA [None]
  - HYPOTENSION [None]
  - INTENTIONAL OVERDOSE [None]
  - SOMNOLENCE [None]
